FAERS Safety Report 5344493-4 (Version None)
Quarter: 2007Q2

REPORT INFORMATION
  Report Type: 
  Country: None (occurrence: None)
  Receive Date: 20070604
  Receipt Date: 20070523
  Transmission Date: 20071010
  Serious: Yes (Other)
  Sender: FDA-Public Use
  Company Number: AR-PFIZER INC-2007033803

PATIENT
  Sex: Male
  Weight: 78 kg

DRUGS (3)
  1. SUTENT [Suspect]
     Indication: RENAL CELL CARCINOMA STAGE UNSPECIFIED
     Route: 048
  2. ALL OTHER THERAPEUTIC PRODUCTS [Concomitant]
  3. ENALAPRIL MALEATE [Concomitant]

REACTIONS (7)
  - ABASIA [None]
  - DIARRHOEA [None]
  - EYELID OEDEMA [None]
  - GASTRIC DISORDER [None]
  - HAEMORRHOIDS [None]
  - LACRIMATION INCREASED [None]
  - SKIN IRRITATION [None]
